FAERS Safety Report 8338540-5 (Version None)
Quarter: 2012Q2

REPORT INFORMATION
  Report Type: 
  Country: None (occurrence: None)
  Receive Date: 20120504
  Receipt Date: 20120424
  Transmission Date: 20120825
  Serious: Yes (Other)
  Sender: FDA-Public Use
  Company Number: JP-BAXTER-2011BH037539

PATIENT
  Sex: Male

DRUGS (2)
  1. EXTRANEAL [Suspect]
     Route: 033
  2. DIANEAL-N PD-2 2.5 PD SOLUTION [Suspect]
     Route: 033

REACTIONS (1)
  - LOSS OF CONSCIOUSNESS [None]
